FAERS Safety Report 4371971-7 (Version None)
Quarter: 2004Q2

REPORT INFORMATION
  Report Type: 
  Country: None (occurrence: None)
  Receive Date: 20040602
  Receipt Date: 20040526
  Transmission Date: 20050107
  Serious: Yes (Life-Threatening)
  Sender: FDA-Public Use
  Company Number: GBWYE782826MAY04

PATIENT
  Age: 52 Year
  Sex: Female

DRUGS (3)
  1. LODINE XL [Suspect]
     Indication: ARTHRITIS
     Dosage: 600 MG SINGLE DOSE ORAL
     Route: 048
     Dates: start: 20020101
  2. TRIDESTRA (ESTRADIOL VALERATE/MEDROXYPROGESTERONE ACETATE) [Concomitant]
  3. THYROXINE I 125 (THYROXINE I 125) [Concomitant]

REACTIONS (2)
  - COOMBS POSITIVE HAEMOLYTIC ANAEMIA [None]
  - DISEASE RECURRENCE [None]
